FAERS Safety Report 10197049 (Version 1)
Quarter: 2014Q2

REPORT INFORMATION
  Report Type: Spontaneous
  Country: US (occurrence: None)
  Receive Date: 20140523
  Receipt Date: 20140523
  Transmission Date: 20141212
  Serious: Yes (Hospitalization)
  Sender: FDA-Public Use
  Company Number: None

PATIENT
  Age: 51 Year
  Sex: Female

DRUGS (4)
  1. WARFARIN [Suspect]
     Indication: MITRAL VALVE REPAIR
     Dosage: VARIABLE DAILY PO
     Route: 048
     Dates: start: 20140401
  2. ACETAMINOPHEN [Concomitant]
  3. DIGOXIN [Concomitant]
  4. VALSARTAN [Concomitant]

REACTIONS (1)
  - International normalised ratio increased [None]
